FAERS Safety Report 21032309 (Version 6)
Quarter: 2022Q4

REPORT INFORMATION
  Report Type: Spontaneous
  Country: US (occurrence: US)
  Receive Date: 20220701
  Receipt Date: 20221020
  Transmission Date: 20230113
  Serious: No
  Sender: FDA-Public Use
  Company Number: US-PFIZER INC-202200866332

PATIENT
  Age: 4 Year
  Sex: Female
  Weight: 11.79 kg

DRUGS (1)
  1. GENOTROPIN [Suspect]
     Active Substance: SOMATROPIN
     Indication: Growth hormone deficiency
     Dosage: 0.4 EVERY NIGHT

REACTIONS (6)
  - Device information output issue [Unknown]
  - Device use issue [Unknown]
  - Device power source issue [Unknown]
  - Drug dose omission by device [Unknown]
  - Dyspnoea [Unknown]
  - Malaise [Unknown]

NARRATIVE: CASE EVENT DATE: 20220601
